FAERS Safety Report 16411828 (Version 2)
Quarter: 2019Q2

REPORT INFORMATION
  Report Type: Spontaneous
  Country: CO (occurrence: CO)
  Receive Date: 20190610
  Receipt Date: 20190613
  Transmission Date: 20190711
  Serious: Yes (Hospitalization)
  Sender: FDA-Public Use
  Company Number: CO-BIOMARINAP-CO-2019-124090

PATIENT
  Age: 8 Year
  Sex: Female
  Weight: 14 kg

DRUGS (1)
  1. VIMIZIM [Suspect]
     Active Substance: ELOSULFASE ALFA
     Indication: MUCOPOLYSACCHARIDOSIS IV
     Dosage: 5 MILLIGRAM, QW
     Route: 042
     Dates: start: 20180302

REACTIONS (5)
  - Pain in extremity [Unknown]
  - Burning sensation [Unknown]
  - Knee operation [Unknown]
  - Pruritus [Unknown]
  - Ankle operation [Unknown]

NARRATIVE: CASE EVENT DATE: 20190605
